FAERS Safety Report 9252747 (Version 1)
Quarter: 2013Q1

REPORT INFORMATION
  Report Type: Spontaneous
  Country: US (occurrence: None)
  Receive Date: 20130305
  Receipt Date: 20130305
  Transmission Date: 20140127
  Serious: Yes (Hospitalization)
  Sender: FDA-Public Use
  Company Number: 163-201880-12091385

PATIENT
  Age: 71 Year
  Sex: Male
  Weight: 69.4 kg

DRUGS (33)
  1. REVLIMID [Suspect]
     Indication: PLASMA CELL MYELOMA
     Dosage: 21 IN 28 D
     Route: 048
     Dates: start: 20120105
  2. ALBUTEROL (SALBUTAMOL) [Concomitant]
  3. AMLODIPINE (AMLODIPINE) [Suspect]
  4. ARICEPT [Concomitant]
  5. CARAFATE (SUCRALFATE) [Concomitant]
  6. CELEXA (CITALOPRAM HYDROBROMIDE) [Concomitant]
  7. CENTRUM SILVER (CENTRUM SILVER) [Concomitant]
  8. CLONAZEPAM (CLONAZEPAM) (CLONAZEPAM) [Concomitant]
  9. DEXAMETHASONE (DEXAMETHASONE) [Concomitant]
  10. DIFLUCAN (FLUCONAZOLE) [Concomitant]
  11. DOXAZOSIN (DOXAZOSIN) [Concomitant]
  12. FERREX (POLYSACCHARIDE-IRON COMPLEX) [Concomitant]
  13. LANTUS (INSULIN GLARGINE) [Concomitant]
  14. LEVAQUIN (LEVOFLOXACIN) [Concomitant]
  15. LIPITOR (ATORVASTATIN) [Concomitant]
  16. LISINOPRIL (LISINOPRIL) [Concomitant]
  17. MAGNESIUM OXIDE (MAGNESIUM OXIDE) [Concomitant]
  18. METFORMIN (METFORMIN) [Concomitant]
  19. NYSTATIN (NYSTATIN) [Concomitant]
  20. OCEAN NASAL SPRAY (SODIUM CHLORIDE) (SPRAY NOT INHALATION) [Concomitant]
  21. OMEPRAZOLE (OMEPRAZOLE) [Concomitant]
  22. PERCOCET (OXYCOCET) [Concomitant]
  23. REMERON (MIRTAZAPINE) [Concomitant]
  24. SPIRIVA (TIOTROPIUM BROMIDE) [Concomitant]
  25. SYMBICORT (SYMBICORT TURBUHALER ^DRACO^) [Concomitant]
  26. VENLAFAXINE (VENLAFAXINE) [Concomitant]
  27. VACTIV (PROCATEROL HYDROCHLORIDE) [Concomitant]
  28. VITAMIN C [Concomitant]
  29. VITAMIN D (ERGOCALCIFEROL) [Concomitant]
  30. XOPENEX (LEVOSALBUTAMOL) [Concomitant]
  31. ZOFRAN (ONDANSETRON HYDROCHLORIDE) [Concomitant]
  32. ZOMETA (ZOLEDRONIC ACID) [Concomitant]
  33. NEURONTIN (GABAPENTIN) [Concomitant]

REACTIONS (6)
  - Pneumonia [None]
  - Asthenia [None]
  - Gait disturbance [None]
  - Sinusitis [None]
  - Local swelling [None]
  - Haematochezia [None]
